FAERS Safety Report 8860285 (Version 2)
Quarter: 2012Q4

REPORT INFORMATION
  Report Type: 
  Country: US (occurrence: US)
  Receive Date: 20121025
  Receipt Date: 20121126
  Transmission Date: 20130627
  Serious: Yes (Hospitalization, Other)
  Sender: FDA-Public Use
  Company Number: US-PFIZER INC-2012263961

PATIENT
  Age: 53 Year
  Sex: Female

DRUGS (19)
  1. EFFEXOR [Suspect]
     Indication: FATIGUE EXTREME
     Dosage: 150 mg, 1x/day
     Dates: start: 201110
  2. EFFEXOR [Suspect]
     Indication: SLEEP DIFFICULT
     Dosage: 112.5 mg, UNK
  3. EFFEXOR [Suspect]
     Indication: COGNITIVE DISORDER
     Dosage: 3 3/4 tabs
  4. EFFEXOR [Suspect]
     Dosage: 1/4 tab
  5. EFFEXOR [Suspect]
     Dosage: 1/8 of a tablet
     Dates: end: 20121031
  6. SYNTHROID [Concomitant]
     Dosage: UNK
  7. SINGULAIR [Concomitant]
     Dosage: UNK
  8. NEXIUM [Concomitant]
     Dosage: UNK
  9. BABY ASA [Concomitant]
     Dosage: UNK
  10. GLUCOSAMINE [Concomitant]
     Dosage: UNK
  11. MULTIVITAMINS [Concomitant]
     Dosage: UNK
  12. VITAMIN B12 [Concomitant]
     Dosage: UNK
  13. VITAMIN B6 [Concomitant]
     Dosage: UNK
  14. STOOL SOFTENER [Concomitant]
     Dosage: UNK
  15. MOTRIN [Concomitant]
     Dosage: UNK
  16. ALAVERT [Concomitant]
     Dosage: UNK
  17. PRO-AIR [Concomitant]
     Dosage: UNK
  18. FLOVENT [Concomitant]
     Indication: ALLERGY
     Dosage: UNK
  19. FLOVENT [Concomitant]
     Indication: ASTHMA AGGRAVATED

REACTIONS (18)
  - Off label use [Unknown]
  - Syncope [Unknown]
  - Dehydration [Unknown]
  - Dizziness [Not Recovered/Not Resolved]
  - Malaise [Unknown]
  - Diarrhoea [Unknown]
  - Vomiting [Unknown]
  - Musculoskeletal chest pain [Unknown]
  - Pyrexia [Unknown]
  - Hypotension [Unknown]
  - Heart rate increased [Unknown]
  - Tremor [Unknown]
  - Withdrawal syndrome [Unknown]
  - Product quality issue [Unknown]
  - Hypoacusis [Unknown]
  - Feeling abnormal [Unknown]
  - Balance disorder [Not Recovered/Not Resolved]
  - Nausea [Unknown]
